FAERS Safety Report 11307459 (Version 1)
Quarter: 2015Q3

REPORT INFORMATION
  Report Type: Spontaneous
  Country: CN (occurrence: CN)
  Receive Date: 20150723
  Receipt Date: 20150723
  Transmission Date: 20151125
  Serious: Yes (Disabling)
  Sender: FDA-Public Use
  Company Number: PHHY2015CN087679

PATIENT
  Age: 77 Year
  Sex: Male
  Weight: 62 kg

DRUGS (1)
  1. LESCOL [Suspect]
     Active Substance: FLUVASTATIN SODIUM
     Indication: ARTERIOSCLEROSIS
     Dosage: 40 UG, QD
     Route: 048
     Dates: start: 20141218, end: 20141231

REACTIONS (2)
  - Hepatic function abnormal [Unknown]
  - Cardiomyopathy [Unknown]

NARRATIVE: CASE EVENT DATE: 20141231
